FAERS Safety Report 9669168 (Version 1)
Quarter: 2013Q4

REPORT INFORMATION
  Report Type: Report from Study
  Country: JP (occurrence: JP)
  Receive Date: 20131105
  Receipt Date: 20131105
  Transmission Date: 20140711
  Serious: Yes (Death)
  Sender: FDA-Public Use
  Company Number: JP-SA-2013SA112760

PATIENT
  Sex: 0

DRUGS (4)
  1. DOCETAXEL [Suspect]
     Indication: PROSTATE CANCER
     Route: 065
  2. PREDNISOLONE [Suspect]
     Indication: PROSTATE CANCER
     Route: 065
  3. ESTRAMUSTINE [Suspect]
     Indication: PROSTATE CANCER
     Dosage: GIVEN FOR 5 DAYS DURING WEEK 1 AND 2.
     Route: 048
  4. DEXAMETHASONE [Concomitant]
     Indication: PREMEDICATION
     Route: 042

REACTIONS (1)
  - Death [Fatal]
